FAERS Safety Report 10525626 (Version 16)
Quarter: 2018Q3

REPORT INFORMATION
  Report Type: Report from Study
  Country: CA (occurrence: CA)
  Receive Date: 20141017
  Receipt Date: 20180727
  Transmission Date: 20181010
  Serious: Yes (Hospitalization, Other)
  Sender: FDA-Public Use
  Company Number: PHHY2014CA024969

PATIENT
  Age: 89 Year
  Sex: Female

DRUGS (5)
  1. SANDOSTATIN [Suspect]
     Active Substance: OCTREOTIDE ACETATE
     Indication: PITUITARY TUMOUR BENIGN
     Dosage: UNK,  ONCE/SINGLE (TEST DOSE)
     Route: 058
     Dates: start: 20140213, end: 20140213
  2. SANDOSTATIN LAR DEPOT [Suspect]
     Active Substance: OCTREOTIDE ACETATE
     Indication: PITUITARY TUMOUR BENIGN
     Dosage: 20 MG, EVERY 6 WEEKS
     Route: 030
     Dates: start: 20140225
  3. CODEINE PHOSPHATE [Suspect]
     Active Substance: CODEINE PHOSPHATE
     Indication: PRODUCT USED FOR UNKNOWN INDICATION
     Route: 065
  4. SANDOSTATIN LAR DEPOT [Suspect]
     Active Substance: OCTREOTIDE ACETATE
     Dosage: 30 MG, QMO (EVERY 4 WEEKS)
     Route: 030
     Dates: start: 20160720
  5. SANDOSTATIN LAR DEPOT [Suspect]
     Active Substance: OCTREOTIDE ACETATE
     Dosage: 20 MG, QMO (EVERY 4 WEEKS)
     Route: 030
     Dates: start: 20140602

REACTIONS (25)
  - Cough [Unknown]
  - Movement disorder [Unknown]
  - Cardiac flutter [Unknown]
  - Pallor [Unknown]
  - Full blood count decreased [Unknown]
  - Injection site pruritus [Recovered/Resolved]
  - Gait disturbance [Unknown]
  - Ventricular extrasystoles [Unknown]
  - Weight increased [Unknown]
  - Excessive cerumen production [Unknown]
  - Fall [Unknown]
  - Memory impairment [Unknown]
  - Rash erythematous [Unknown]
  - Body temperature increased [Unknown]
  - Heart rate irregular [Unknown]
  - General physical health deterioration [Unknown]
  - Fat tissue increased [Unknown]
  - Oropharyngeal pain [Unknown]
  - Arthralgia [Unknown]
  - Blood pressure systolic increased [Unknown]
  - Asthenia [Unknown]
  - Hip fracture [Unknown]
  - Hypoacusis [Recovered/Resolved]
  - Nasopharyngitis [Unknown]
  - Inappropriate schedule of drug administration [Unknown]

NARRATIVE: CASE EVENT DATE: 2014
